FAERS Safety Report 15756099 (Version 2)
Quarter: 2019Q2

REPORT INFORMATION
  Report Type: Spontaneous
  Country: CN (occurrence: CN)
  Receive Date: 20181224
  Receipt Date: 20190406
  Transmission Date: 20190711
  Serious: Yes (Other)
  Sender: FDA-Public Use
  Company Number: CN-ROCHE-2234921

PATIENT
  Age: 65 Year
  Sex: Female

DRUGS (11)
  1. AVASTIN [Suspect]
     Active Substance: BEVACIZUMAB
     Indication: METASTASIS
     Route: 065
     Dates: start: 20180510
  2. PACLITAXEL. [Suspect]
     Active Substance: PACLITAXEL
     Indication: METASTASES TO PLEURA
  3. NEDAPLATIN [Suspect]
     Active Substance: NEDAPLATIN
     Indication: METASTASES TO PLEURA
  4. CARBOPLATIN. [Concomitant]
     Active Substance: CARBOPLATIN
     Route: 065
     Dates: start: 20170407
  5. PACLITAXEL. [Suspect]
     Active Substance: PACLITAXEL
     Indication: METASTASIS
  6. AVASTIN [Suspect]
     Active Substance: BEVACIZUMAB
     Indication: METASTASES TO PLEURA
  7. NEDAPLATIN [Suspect]
     Active Substance: NEDAPLATIN
     Indication: ADENOCARCINOMA
  8. PACLITAXEL. [Suspect]
     Active Substance: PACLITAXEL
     Indication: ADENOCARCINOMA
     Route: 065
     Dates: start: 20180510
  9. NEDAPLATIN [Suspect]
     Active Substance: NEDAPLATIN
     Indication: METASTASIS
     Dosage: D1-3
     Route: 065
     Dates: start: 20180510
  10. PEMETREXED. [Concomitant]
     Active Substance: PEMETREXED
     Indication: CHEMOTHERAPY
     Route: 065
     Dates: start: 20170407
  11. AVASTIN [Suspect]
     Active Substance: BEVACIZUMAB
     Indication: ADENOCARCINOMA

REACTIONS (4)
  - Agranulocytosis [Unknown]
  - Alopecia [Unknown]
  - Asthenia [Unknown]
  - Fatigue [Unknown]
